FAERS Safety Report 10568367 (Version 1)
Quarter: 2014Q4

REPORT INFORMATION
  Report Type: Spontaneous
  Country: US (occurrence: US)
  Receive Date: 20141106
  Receipt Date: 20141106
  Transmission Date: 20150529
  Serious: No
  Sender: FDA-Public Use
  Company Number: US-BAUSCH-BL-2014-004457

PATIENT
  Age: 70 Year
  Sex: Male

DRUGS (2)
  1. ZIRGAN [Suspect]
     Active Substance: GANCICLOVIR
     Route: 047
     Dates: start: 2014
  2. ZIRGAN [Suspect]
     Active Substance: GANCICLOVIR
     Indication: VIRAL INFECTION
     Route: 047
     Dates: start: 201408, end: 201408

REACTIONS (2)
  - Eye pain [Recovered/Resolved]
  - Eye irritation [Recovered/Resolved]

NARRATIVE: CASE EVENT DATE: 201408
